FAERS Safety Report 16641285 (Version 2)
Quarter: 2019Q3

REPORT INFORMATION
  Report Type: Spontaneous
  Country: US (occurrence: US)
  Receive Date: 20190729
  Receipt Date: 20190803
  Transmission Date: 20191004
  Serious: Yes (Life-Threatening, Hospitalization, Other)
  Sender: FDA-Public Use
  Company Number: US-DRREDDYS-USA/USA/19/0112439

PATIENT
  Age: 46 Year
  Sex: Male

DRUGS (2)
  1. MYCOPHENOLATE MOFETIL. [Suspect]
     Active Substance: MYCOPHENOLATE MOFETIL
     Indication: IMMUNOSUPPRESSION
     Route: 065
  2. TACROLIMUS. [Suspect]
     Active Substance: TACROLIMUS
     Indication: IMMUNOSUPPRESSION
     Route: 065

REACTIONS (5)
  - Histoplasmosis [Recovered/Resolved]
  - Haemophagocytic lymphohistiocytosis [Recovered/Resolved]
  - Respiratory failure [Recovered/Resolved]
  - Renal impairment [Recovered/Resolved]
  - Acute respiratory distress syndrome [Recovered/Resolved]
